FAERS Safety Report 14448210 (Version 2)
Quarter: 2018Q1

REPORT INFORMATION
  Report Type: Report from Study
  Country: US (occurrence: US)
  Receive Date: 20180126
  Receipt Date: 20180216
  Transmission Date: 20180509
  Serious: Yes (Hospitalization)
  Sender: FDA-Public Use
  Company Number: US-ACTELION-A-NJ2017-163015

PATIENT
  Age: 69 Year
  Sex: Female
  Weight: 55.33 kg

DRUGS (6)
  1. OPSUMIT [Concomitant]
     Active Substance: MACITENTAN
  2. WARFARIN [Concomitant]
     Active Substance: WARFARIN
  3. UPTRAVI [Suspect]
     Active Substance: SELEXIPAG
     Indication: PULMONARY ARTERIAL HYPERTENSION
     Dosage: 1400 MCG, BID
     Route: 048
  4. ADEMPAS [Concomitant]
     Active Substance: RIOCIGUAT
  5. UPTRAVI [Suspect]
     Active Substance: SELEXIPAG
     Dosage: 1600 MCG, BID
     Route: 048
  6. ZOFRAN [Concomitant]
     Active Substance: ONDANSETRON HYDROCHLORIDE

REACTIONS (10)
  - Post procedural haemorrhage [Recovered/Resolved]
  - Hypotension [Unknown]
  - Nausea [Unknown]
  - Musculoskeletal pain [Unknown]
  - Blood iron decreased [Unknown]
  - Anaemia [Unknown]
  - Colonoscopy [Recovered/Resolved]
  - Oxygen saturation decreased [Unknown]
  - Therapy non-responder [Unknown]
  - Abnormal faeces [Unknown]
